FAERS Safety Report 4471764-6 (Version None)
Quarter: 2004Q4

REPORT INFORMATION
  Report Type: 
  Country: None (occurrence: None)
  Receive Date: 20041012
  Receipt Date: 20041001
  Transmission Date: 20050328
  Serious: Yes (Hospitalization)
  Sender: FDA-Public Use
  Company Number: JP-JNJFOC-20041001021

PATIENT
  Sex: Female

DRUGS (1)
  1. MICONAZOLE [Suspect]
     Indication: ORAL CANDIDIASIS
     Route: 065

REACTIONS (3)
  - CONDITION AGGRAVATED [None]
  - JAUNDICE [None]
  - NASOPHARYNGITIS [None]
